FAERS Safety Report 13296264 (Version 5)
Quarter: 2017Q4

REPORT INFORMATION
  Report Type: Report from Study
  Country: None (occurrence: NL)
  Receive Date: 20170304
  Receipt Date: 20171127
  Transmission Date: 20180320
  Serious: Yes (Hospitalization)
  Sender: FDA-Public Use
  Company Number: NL-ABBVIE-17P-114-1880864-00

PATIENT
  Age: 77 Year
  Sex: Male

DRUGS (2)
  1. DUODOPA [Suspect]
     Active Substance: CARBIDOPA\LEVODOPA
     Indication: PARKINSON^S DISEASE
     Dosage: MORNING DOSE: 17.6; CONTINUOUS DOSE: 1.3; EXTRA DOSE: 1.0 AND NIGHT DOSE 0.8 ML
     Route: 050
     Dates: start: 20160613
  2. DUODOPA [Suspect]
     Active Substance: CARBIDOPA\LEVODOPA
     Dosage: MD 9.6, CD 1.2
     Route: 050

REACTIONS (10)
  - Muscle rigidity [Recovering/Resolving]
  - On and off phenomenon [Recovered/Resolved]
  - Poor quality sleep [Not Recovered/Not Resolved]
  - Stoma site discharge [Recovered/Resolved]
  - Underdose [Recovered/Resolved]
  - Drug ineffective [Not Recovered/Not Resolved]
  - Stoma site erythema [Recovered/Resolved]
  - Parkinson^s disease [Not Recovered/Not Resolved]
  - Tremor [Not Recovered/Not Resolved]
  - Tremor [Recovered/Resolved]

NARRATIVE: CASE EVENT DATE: 2017
